FAERS Safety Report 10048486 (Version 3)
Quarter: 2014Q2

REPORT INFORMATION
  Report Type: Spontaneous
  Country: JP (occurrence: JP)
  Receive Date: 20140331
  Receipt Date: 20140429
  Transmission Date: 20141212
  Serious: Yes (Hospitalization, Other)
  Sender: FDA-Public Use
  Company Number: PHHY2014JP038417

PATIENT
  Sex: Male
  Weight: .9 kg

DRUGS (3)
  1. NEORAL [Suspect]
     Indication: NEPHROTIC SYNDROME
     Dosage: DRUG EXPOSURE VIA MOTHER AT 75 MG DAILY
     Route: 064
  2. PREDONINE [Suspect]
     Dosage: DRUG EXPOSURE VIA MOTHER AT 10 MG
     Route: 064
  3. MAGLAX [Concomitant]
     Dosage: DRUG EXPOSURE VIA MOTHER AT 990 MG
     Route: 064

REACTIONS (7)
  - Bronchopulmonary dysplasia [Unknown]
  - Supraventricular tachycardia [Recovering/Resolving]
  - Ventricular tachycardia [Recovering/Resolving]
  - Hyperbilirubinaemia [Recovered/Resolved]
  - Low birth weight baby [Unknown]
  - Foetal exposure during pregnancy [Unknown]
  - Exposure during breast feeding [Unknown]
